FAERS Safety Report 14420762 (Version 1)
Quarter: 2018Q1

REPORT INFORMATION
  Report Type: Spontaneous
  Country: US (occurrence: US)
  Receive Date: 20180122
  Receipt Date: 20180122
  Transmission Date: 20180509
  Serious: No
  Sender: FDA-Public Use
  Company Number: US-ROCHE-1940413

PATIENT
  Age: 59 Year
  Sex: Female
  Weight: 65.83 kg

DRUGS (1)
  1. RITUXAN [Suspect]
     Active Substance: RITUXIMAB
     Indication: MARGINAL ZONE LYMPHOMA
     Dosage: ONCE A WEEK FOR 4 WEEKS
     Route: 042
     Dates: start: 20170516

REACTIONS (3)
  - Paraproteinaemia [Unknown]
  - White blood cell count decreased [Unknown]
  - Platelet count increased [Unknown]

NARRATIVE: CASE EVENT DATE: 20170519
